FAERS Safety Report 18122111 (Version 4)
Quarter: 2020Q3

REPORT INFORMATION
  Report Type: Report from Study
  Country: DE (occurrence: DE)
  Receive Date: 20200806
  Receipt Date: 20200916
  Transmission Date: 20201103
  Serious: Yes (Hospitalization)
  Sender: FDA-Public Use
  Company Number: DE-ROCHE-2583784

PATIENT
  Age: 65 Year
  Sex: Male

DRUGS (7)
  1. TAMSULOSIN [Concomitant]
     Active Substance: TAMSULOSIN
     Dosage: ONGOING YES
     Route: 048
  2. HCT [Concomitant]
     Active Substance: HYDROCHLOROTHIAZIDE
     Dosage: ONGOING YES
     Route: 048
  3. LIXIANA [Concomitant]
     Active Substance: EDOXABAN TOSYLATE
     Route: 048
  4. ATEZOLIZUMAB. [Suspect]
     Active Substance: ATEZOLIZUMAB
     Indication: MALIGNANT NEOPLASM OF UNKNOWN PRIMARY SITE
     Dosage: DATE OF LAST DOSE OF TREATMENT STUDY DRUG 3 PRIOR TO SAE/AESI ONSET 07/JUL/2020 (1200 MG)
     Route: 042
     Dates: start: 20200324
  5. PACLITAXEL. [Suspect]
     Active Substance: PACLITAXEL
     Indication: MALIGNANT NEOPLASM OF UNKNOWN PRIMARY SITE
     Dosage: DOSE OF LAST TREATMENT STUDY DRUG 2 ADMINISTERED PRIOR TO SAE/AESI ONSET: 09/JUL/2019 (390 MG)
     Route: 042
     Dates: start: 20190509
  6. BISOHEXAL [Concomitant]
     Active Substance: BISOPROLOL FUMARATE
     Dosage: ONGOING YES
     Route: 048
  7. CARBOPLATIN. [Suspect]
     Active Substance: CARBOPLATIN
     Indication: MALIGNANT NEOPLASM OF UNKNOWN PRIMARY SITE
     Dosage: DATE OF LAST DOSE OF TREATMENT STUDY DRUG 1 PRIOR TO SAE/AESI ONSET: 09/JUL/2019 (450 MG)
     Route: 042
     Dates: start: 20190509

REACTIONS (2)
  - Anal fistula [Recovered/Resolved]
  - Anal abscess [Recovered/Resolved]

NARRATIVE: CASE EVENT DATE: 20200405
